FAERS Safety Report 13176282 (Version 1)
Quarter: 2017Q1

REPORT INFORMATION
  Report Type: Spontaneous
  Country: US (occurrence: US)
  Receive Date: 20170201
  Receipt Date: 20170201
  Transmission Date: 20170428
  Serious: No
  Sender: FDA-Public Use
  Company Number: US-BAYER-2017-017055

PATIENT
  Age: 67 Year
  Sex: Female

DRUGS (3)
  1. CORICIDIN HBP MAXIMUM STRENGTH FLU [Suspect]
     Active Substance: ACETAMINOPHEN\CHLORPHENIRAMINE MALEATE\DEXTROMETHORPHAN HYDROBROMIDE
     Indication: HYPERSENSITIVITY
     Dosage: 2 DF, UNK
     Route: 065
  2. ALEVE [Suspect]
     Active Substance: NAPROXEN SODIUM
     Dosage: UNK
     Route: 065
  3. CORICIDIN HBP MAXIMUM STRENGTH FLU [Suspect]
     Active Substance: ACETAMINOPHEN\CHLORPHENIRAMINE MALEATE\DEXTROMETHORPHAN HYDROBROMIDE
     Indication: NASOPHARYNGITIS

REACTIONS (2)
  - Hypoaesthesia [Unknown]
  - Swelling face [Unknown]
